FAERS Safety Report 25254953 (Version 1)
Quarter: 2025Q2

REPORT INFORMATION
  Report Type: Spontaneous
  Country: JP (occurrence: JP)
  Receive Date: 20250430
  Receipt Date: 20250430
  Transmission Date: 20250716
  Serious: Yes (Hospitalization, Other)
  Sender: Norvium Bioscience
  Company Number: JP-Norvium Bioscience LLC-080081

PATIENT
  Age: 55 Year
  Sex: Female

DRUGS (1)
  1. CLARITHROMYCIN [Suspect]
     Active Substance: CLARITHROMYCIN
     Indication: Mycobacterium avium complex infection

REACTIONS (4)
  - Drug resistance [Unknown]
  - Condition aggravated [Recovered/Resolved]
  - Productive cough [Recovered/Resolved]
  - Bronchiectasis [Unknown]

NARRATIVE: CASE EVENT DATE: 20220101
